FAERS Safety Report 5779214-4 (Version None)
Quarter: 2008Q2

REPORT INFORMATION
  Report Type: 
  Country: None (occurrence: None)
  Receive Date: 20080601
  Receipt Date: 20080324
  Transmission Date: 20081010
  Serious: No
  Sender: FDA-Public Use
  Company Number: US200801001867

PATIENT
  Age: 75 Year
  Sex: Male
  Weight: 106.6 kg

DRUGS (8)
  1. BYETTA [Suspect]
     Indication: TYPE 2 DIABETES MELLITUS
     Dosage: 5 UG, 2/D, SUBCUTANEOUS; 10 UG, 2/D, SUBCUTANEOUS
     Route: 058
     Dates: start: 20080105, end: 20080201
  2. BYETTA [Suspect]
     Indication: TYPE 2 DIABETES MELLITUS
     Dosage: 5 UG, 2/D, SUBCUTANEOUS; 10 UG, 2/D, SUBCUTANEOUS
     Route: 058
     Dates: start: 20080201
  3. BYETTA [Suspect]
  4. METFORMIN HCL [Concomitant]
  5. ACTOS [Concomitant]
  6. TIMOLOL (TIMOLOL) EYE DROPS [Concomitant]
  7. TRAVATAN [Concomitant]
  8. XANAX [Concomitant]

REACTIONS (6)
  - BLOOD GLUCOSE DECREASED [None]
  - DIZZINESS [None]
  - DRUG INEFFECTIVE [None]
  - FEELING ABNORMAL [None]
  - INJECTION SITE BRUISING [None]
  - VISUAL ACUITY REDUCED [None]
